FAERS Safety Report 8403247-2 (Version None)
Quarter: 2012Q2

REPORT INFORMATION
  Report Type: 
  Country: None (occurrence: None)
  Receive Date: 20120601
  Receipt Date: 20120531
  Transmission Date: 20120825
  Serious: Yes (Other)
  Sender: FDA-Public Use
  Company Number: HU-ROCHE-1074100

PATIENT
  Sex: Female

DRUGS (1)
  1. MABTHERA [Suspect]
     Indication: RHEUMATOID ARTHRITIS
     Route: 041
     Dates: start: 20120530, end: 20120530

REACTIONS (4)
  - MUSCLE TIGHTNESS [None]
  - PRURITUS [None]
  - ERYTHEMA [None]
  - BLOOD PRESSURE INCREASED [None]
